FAERS Safety Report 10632121 (Version 1)
Quarter: 2014Q4

REPORT INFORMATION
  Report Type: Spontaneous
  Country: US (occurrence: None)
  Receive Date: 20141203
  Receipt Date: 20141203
  Transmission Date: 20150529
  Serious: No
  Sender: FDA-Public Use
  Company Number: None

PATIENT

DRUGS (2)
  1. LIDOCAINE 2% [Suspect]
     Active Substance: LIDOCAINE
  2. ISOVUE [Suspect]
     Active Substance: IOPAMIDOL

REACTIONS (4)
  - Sinus tachycardia [None]
  - Seizure [None]
  - Product packaging confusion [None]
  - Wrong drug administered [None]
